FAERS Safety Report 18619481 (Version 7)
Quarter: 2021Q2

REPORT INFORMATION
  Report Type: Report from Study
  Country: JP (occurrence: JP)
  Receive Date: 20201215
  Receipt Date: 20210618
  Transmission Date: 20210717
  Serious: Yes (Death)
  Sender: FDA-Public Use
  Company Number: JP-JNJFOC-20201221511

PATIENT
  Age: 84 Year
  Sex: Male
  Weight: 51.5 kg

DRUGS (35)
  1. DELAMANID [Concomitant]
     Active Substance: DELAMANID
     Indication: PULMONARY TUBERCULOSIS
     Route: 048
     Dates: start: 20200606, end: 20200808
  2. DOPAMINE [Concomitant]
     Active Substance: DOPAMINE HYDROCHLORIDE
     Indication: PULMONARY TUBERCULOSIS
     Route: 065
     Dates: start: 20201111, end: 20201118
  3. VOLVIX [Concomitant]
     Indication: PULMONARY TUBERCULOSIS
     Route: 065
     Dates: start: 20201111, end: 20201118
  4. LINEZOLID. [Concomitant]
     Active Substance: LINEZOLID
     Indication: PULMONARY TUBERCULOSIS
     Route: 048
     Dates: start: 20200928, end: 20201117
  5. URIEF [Concomitant]
     Active Substance: SILODOSIN
     Indication: BENIGN PROSTATIC HYPERPLASIA
     Route: 048
     Dates: end: 20200808
  6. VITAJECT [Concomitant]
     Active Substance: CYANOCOBALAMIN\PYRIDOXAMINE HYDROCHLORIDE\THIAMINE HYDROCHLORIDE
     Indication: PULMONARY TUBERCULOSIS
     Dosage: 1A/DAY
     Route: 065
     Dates: start: 20201111, end: 20201118
  7. CYCLOSERINE. [Concomitant]
     Active Substance: CYCLOSERINE
     Indication: PULMONARY TUBERCULOSIS
     Dosage: DOSE UNKNOWN
     Route: 048
     Dates: start: 20200406, end: 20200605
  8. TUBERMIN [Concomitant]
     Active Substance: ETHIONAMIDE
     Indication: PULMONARY TUBERCULOSIS
     Route: 048
     Dates: start: 20200406, end: 20200716
  9. AVOLVE [Concomitant]
     Active Substance: DUTASTERIDE
     Indication: BENIGN PROSTATIC HYPERPLASIA
     Route: 048
     Dates: end: 20200808
  10. DOPAMINE [Concomitant]
     Active Substance: DOPAMINE HYDROCHLORIDE
     Indication: CARDIAC TAMPONADE
     Dosage: DOSE UNKNOWN
     Route: 065
  11. ARTIST [Concomitant]
     Active Substance: CARVEDILOL
     Indication: MYOCARDIAL ISCHAEMIA
     Route: 048
     Dates: end: 20200808
  12. LEVOTHYROXINE SODIUM HYDRATE [Concomitant]
     Active Substance: LEVOTHYROXINE SODIUM
     Indication: PULMONARY TUBERCULOSIS
     Route: 048
     Dates: start: 20201107, end: 20201116
  13. LEVOTHYROXINE SODIUM HYDRATE [Concomitant]
     Active Substance: LEVOTHYROXINE SODIUM
     Indication: PULMONARY TUBERCULOSIS
     Route: 048
     Dates: start: 20201117, end: 20201117
  14. FEBUXOSTAT. [Concomitant]
     Active Substance: FEBUXOSTAT
     Indication: PULMONARY TUBERCULOSIS
     Route: 048
     Dates: start: 20201106, end: 20201109
  15. SIRTURO [Suspect]
     Active Substance: BEDAQUILINE FUMARATE
     Indication: PULMONARY TUBERCULOSIS
     Route: 048
     Dates: start: 20200606, end: 20200619
  16. PYRAZINAMIDE. [Concomitant]
     Active Substance: PYRAZINAMIDE
     Indication: PULMONARY TUBERCULOSIS
     Route: 048
     Dates: start: 20200928, end: 20201113
  17. LEVOFLOXACIN HEMIHYDRATE [Concomitant]
     Active Substance: LEVOFLOXACIN
     Indication: PULMONARY TUBERCULOSIS
     Route: 048
     Dates: start: 20200406, end: 20200613
  18. MYSLEE [Concomitant]
     Active Substance: ZOLPIDEM TARTRATE
     Indication: INSOMNIA
     Route: 048
     Dates: end: 20200808
  19. FEBUXOSTAT. [Concomitant]
     Active Substance: FEBUXOSTAT
     Indication: PULMONARY TUBERCULOSIS
     Route: 048
     Dates: start: 20201110, end: 20201116
  20. AMIPAREN [Concomitant]
     Active Substance: AMINO ACIDS, SOURCE UNSPECIFIED
     Indication: PULMONARY TUBERCULOSIS
     Route: 065
     Dates: start: 20201111, end: 20201118
  21. PYRAZINAMIDE. [Concomitant]
     Active Substance: PYRAZINAMIDE
     Indication: PULMONARY TUBERCULOSIS
     Route: 048
     Dates: start: 20200406, end: 20200808
  22. CYCLOSERINE. [Concomitant]
     Active Substance: CYCLOSERINE
     Indication: PULMONARY TUBERCULOSIS
     Route: 048
     Dates: start: 20200928, end: 20201117
  23. DELAMANID [Concomitant]
     Active Substance: DELAMANID
     Indication: PULMONARY TUBERCULOSIS
     Route: 048
     Dates: start: 20200928, end: 20201117
  24. ATORVASTATIN [Concomitant]
     Active Substance: ATORVASTATIN
     Indication: DYSLIPIDAEMIA
     Route: 048
     Dates: end: 20200808
  25. LENDORMIN [Concomitant]
     Active Substance: BROTIZOLAM
     Indication: INSOMNIA
     Route: 048
     Dates: end: 20200808
  26. KETOCONAZOLE. [Concomitant]
     Active Substance: KETOCONAZOLE
     Indication: PULMONARY TUBERCULOSIS
     Route: 061
     Dates: start: 20201114, end: 20201117
  27. ELNEOPA NF NO.2 [Concomitant]
     Indication: PULMONARY TUBERCULOSIS
     Route: 065
     Dates: start: 20201106, end: 20201110
  28. CEFTRIAXONE SODIUM HYDRATE [Concomitant]
     Active Substance: CEFTRIAXONE SODIUM
     Indication: PULMONARY TUBERCULOSIS
     Route: 065
     Dates: start: 20201109, end: 20201116
  29. DELAMANID [Concomitant]
     Active Substance: DELAMANID
     Indication: PULMONARY TUBERCULOSIS
     Route: 048
     Dates: start: 20200928, end: 20201117
  30. SIRTURO [Suspect]
     Active Substance: BEDAQUILINE FUMARATE
     Route: 048
     Dates: start: 20200620, end: 20201116
  31. CYCLOSERINE. [Concomitant]
     Active Substance: CYCLOSERINE
     Indication: PULMONARY TUBERCULOSIS
     Route: 048
     Dates: start: 20200606, end: 20200808
  32. LINEZOLID. [Concomitant]
     Active Substance: LINEZOLID
     Indication: PULMONARY TUBERCULOSIS
     Route: 048
     Dates: start: 20200613, end: 20200808
  33. ELNEOPA NF NO.1 [Concomitant]
     Indication: PULMONARY TUBERCULOSIS
     Route: 065
     Dates: start: 20201105, end: 20201105
  34. HICALIQ RF [Concomitant]
     Active Substance: CALCIUM GLUCONATE\DEXTROSE\MAGNESIUM SULFATE\POTASSIUM ACETATE\POTASSIUM PHOSPHATE, DIBASIC\ZINC SULFATE
     Indication: PULMONARY TUBERCULOSIS
     Route: 065
     Dates: start: 20201111, end: 20201118
  35. PIPERACILLIN AND TAZOBACTAM [Concomitant]
     Active Substance: PIPERACILLIN SODIUM\TAZOBACTAM SODIUM
     Indication: PULMONARY TUBERCULOSIS
     Route: 065
     Dates: start: 20201117, end: 20201118

REACTIONS (2)
  - Cardiac tamponade [Fatal]
  - Myelodysplastic syndrome [Fatal]
